FAERS Safety Report 7125266-9 (Version None)
Quarter: 2010Q4

REPORT INFORMATION
  Report Type: 
  Country: None (occurrence: None)
  Receive Date: 20101115
  Receipt Date: 20101103
  Transmission Date: 20110411
  Serious: Yes (Hospitalization, Disabling, Other)
  Sender: FDA-Public Use
  Company Number: 2010SP031888

PATIENT
  Age: 21 Year
  Sex: Female
  Weight: 78 kg

DRUGS (4)
  1. NUVARING [Suspect]
     Indication: CONTRACEPTION
     Dosage: 1 DF; QM; VAG
     Route: 067
     Dates: start: 20081201, end: 20090304
  2. FENTANYL CITRATE [Suspect]
     Dosage: IV
     Route: 042
     Dates: end: 20090501
  3. TRILEPTAL [Concomitant]
  4. ZOLOFT [Concomitant]

REACTIONS (63)
  - ABDOMINAL DISCOMFORT [None]
  - ACUTE SINUSITIS [None]
  - ANAEMIA [None]
  - ANTINUCLEAR ANTIBODY POSITIVE [None]
  - ANTIPHOSPHOLIPID ANTIBODIES POSITIVE [None]
  - ASTHENIA [None]
  - ASTHMA [None]
  - ATELECTASIS [None]
  - BRONCHITIS [None]
  - CARDIAC FAILURE CONGESTIVE [None]
  - CERVICAL DYSPLASIA [None]
  - COAGULATION FACTOR VIII LEVEL INCREASED [None]
  - COAGULOPATHY [None]
  - COGNITIVE DISORDER [None]
  - CONVULSION [None]
  - DILATATION VENTRICULAR [None]
  - DIZZINESS [None]
  - DRUG INEFFECTIVE [None]
  - ECONOMIC PROBLEM [None]
  - EMOTIONAL DISORDER [None]
  - EXCORIATION [None]
  - FATIGUE [None]
  - HAEMOPTYSIS [None]
  - HEADACHE [None]
  - HEARING IMPAIRED [None]
  - HYPERCOAGULATION [None]
  - HYPERDYNAMIC LEFT VENTRICLE [None]
  - HYPOAESTHESIA [None]
  - HYPOTENSION [None]
  - IMPAIRED WORK ABILITY [None]
  - INJURY [None]
  - JOINT SPRAIN [None]
  - LOSS OF CONSCIOUSNESS [None]
  - MENTAL DISORDER [None]
  - MITRAL VALVE INCOMPETENCE [None]
  - MUSCULOSKELETAL CHEST PAIN [None]
  - NASAL CONGESTION [None]
  - NASOPHARYNGITIS [None]
  - OCCIPITAL NEURALGIA [None]
  - OEDEMA PERIPHERAL [None]
  - PARAESTHESIA [None]
  - PERICARDIAL EFFUSION [None]
  - PLEURAL EFFUSION [None]
  - PNEUMONIA [None]
  - PNEUMONIA PRIMARY ATYPICAL [None]
  - PROTEIN S DECREASED [None]
  - PULMONARY ARTERIAL HYPERTENSION [None]
  - PULMONARY ARTERY THROMBOSIS [None]
  - PULMONARY EMBOLISM [None]
  - PULMONARY GRANULOMA [None]
  - PULMONARY INFARCTION [None]
  - RHINORRHOEA [None]
  - RIGHT VENTRICULAR DYSFUNCTION [None]
  - SINUS TACHYCARDIA [None]
  - STREPTOCOCCAL INFECTION [None]
  - SUBCUTANEOUS EMPHYSEMA [None]
  - SYNCOPE [None]
  - THERMAL BURN [None]
  - TRICUSPID VALVE INCOMPETENCE [None]
  - UPPER RESPIRATORY TRACT INFECTION [None]
  - VENTRICULAR HYPOKINESIA [None]
  - VOMITING [None]
  - WOUND INFECTION BACTERIAL [None]
